FAERS Safety Report 7933837-2 (Version None)
Quarter: 2011Q4

REPORT INFORMATION
  Report Type: 
  Country: None (occurrence: None)
  Receive Date: 20111122
  Receipt Date: 20111109
  Transmission Date: 20120403
  Serious: Yes (Hospitalization)
  Sender: FDA-Public Use
  Company Number: ES-MYLANLABS-2011S1023439

PATIENT
  Age: 72 Year
  Sex: Female

DRUGS (7)
  1. ENALAPRIL MALEATE [Suspect]
     Dosage: 5 MG/DAY
     Route: 065
  2. DICLOFENAC SODIUM [Suspect]
     Route: 065
  3. METOCLOPRAMIDE [Concomitant]
     Route: 065
  4. ASPIRIN [Concomitant]
     Dosage: 100 MG/DAY
     Route: 065
  5. METFORMIN HCL [Suspect]
     Indication: TYPE 2 DIABETES MELLITUS
     Dosage: 850 MG/12H
     Route: 065
  6. FUROSEMIDE [Suspect]
     Dosage: 20 MG/DAY
     Route: 065
  7. OMEPRAZOLE [Concomitant]
     Dosage: 20 MG/DAY
     Route: 065

REACTIONS (2)
  - RENAL FAILURE ACUTE [None]
  - LACTIC ACIDOSIS [None]
